FAERS Safety Report 6758633-3 (Version None)
Quarter: 2010Q2

REPORT INFORMATION
  Report Type: 
  Country: None (occurrence: None)
  Receive Date: 20100607
  Receipt Date: 20100527
  Transmission Date: 20101027
  Serious: Yes (Hospitalization, Other)
  Sender: FDA-Public Use
  Company Number: US-ROCHE-707345

PATIENT
  Sex: Female
  Weight: 81.6 kg

DRUGS (1)
  1. CAPECITABINE [Suspect]
     Indication: BREAST CANCER
     Dosage: DOSE AND FREQUENCY: 1500 MG BID 28 DAYS
     Route: 048
     Dates: start: 20100329, end: 20100420

REACTIONS (4)
  - DIARRHOEA [None]
  - PNEUMONIA [None]
  - RECURRENT CANCER [None]
  - SKIN EXFOLIATION [None]
